FAERS Safety Report 24991829 (Version 1)
Quarter: 2025Q1

REPORT INFORMATION
  Report Type: Spontaneous
  Country: US (occurrence: None)
  Receive Date: 20250220
  Receipt Date: 20250220
  Transmission Date: 20250409
  Serious: Yes (Hospitalization)
  Sender: FDA-CTU
  Company Number: None

PATIENT
  Age: 63 Year
  Sex: Female
  Weight: 70 kg

DRUGS (2)
  1. SEMAGLUTIDE [Suspect]
     Active Substance: SEMAGLUTIDE
     Indication: Weight
     Route: 058
     Dates: start: 20240731, end: 20240823
  2. HYDROXYCHLOROQUINE SULFATE [Suspect]
     Active Substance: HYDROXYCHLOROQUINE SULFATE
     Dosage: FREQUENCY : DAILY;?
     Route: 048
     Dates: start: 20240815, end: 20241011

REACTIONS (5)
  - Dehydration [None]
  - Impaired gastric emptying [None]
  - Nausea [None]
  - Vomiting [None]
  - Rheumatoid arthritis [None]

NARRATIVE: CASE EVENT DATE: 20240817
